FAERS Safety Report 14869056 (Version 5)
Quarter: 2019Q4

REPORT INFORMATION
  Report Type: Report from Study
  Country: US (occurrence: US)
  Receive Date: 20180509
  Receipt Date: 20191118
  Transmission Date: 20200122
  Serious: Yes (Hospitalization, Other)
  Sender: FDA-Public Use
  Company Number: US-INCYTE CORPORATION-2018IN004398

PATIENT

DRUGS (28)
  1. JAKAFI [Suspect]
     Active Substance: RUXOLITINIB
     Dosage: 5 MILLIGRAM, BID
     Route: 048
     Dates: start: 20180425, end: 20180502
  2. DYAZIDE [Concomitant]
     Active Substance: HYDROCHLOROTHIAZIDE\TRIAMTERENE
     Indication: HYPERTENSION
     Dosage: 25-37.5 MG 1 CAPSULE QD
     Route: 048
     Dates: start: 2005
  3. CIPROFLOXACIN. [Concomitant]
     Active Substance: CIPROFLOXACIN
     Indication: URINARY TRACT INFECTION
     Dosage: 250 MG, BID
     Route: 048
     Dates: start: 20180727
  4. RED BLOOD CELLS [Concomitant]
     Active Substance: HUMAN RED BLOOD CELL
     Indication: ANAEMIA
     Dosage: 1 UNIT QD
     Route: 065
     Dates: start: 20180510, end: 20180510
  5. JAKAFI [Suspect]
     Active Substance: RUXOLITINIB
     Dosage: 5 MILLIGRAM, BID
     Route: 048
     Dates: start: 20180418, end: 20180425
  6. JAKAFI [Suspect]
     Active Substance: RUXOLITINIB
     Dosage: 5 MILLIGRAM, QD
     Route: 048
     Dates: start: 20190207, end: 20190410
  7. PROBENECID. [Concomitant]
     Active Substance: PROBENECID
     Indication: GOUTY ARTHRITIS
     Dosage: 250 MG, QD
     Route: 048
     Dates: start: 20110824
  8. NORTRIPTYLINE HCL [Concomitant]
     Active Substance: NORTRIPTYLINE HYDROCHLORIDE
     Indication: NEUROPATHY PERIPHERAL
     Dosage: 50 MILLIGRAM, QD
     Route: 065
     Dates: start: 20150315, end: 20190326
  9. LIPITOR [Concomitant]
     Active Substance: ATORVASTATIN CALCIUM
     Indication: PERIPHERAL VASCULAR DISORDER
     Dosage: 10 MG, QD
     Route: 048
     Dates: start: 20151103
  10. NORTRIPTYLINE [Concomitant]
     Active Substance: NORTRIPTYLINE
     Indication: NEUROPATHY PERIPHERAL
     Dosage: 50 MG, ALTERNATING NIGHTLY
     Route: 048
     Dates: start: 20190327
  11. JAKAFI [Suspect]
     Active Substance: RUXOLITINIB
     Dosage: 10 MILLIGRAM, QD
     Route: 048
     Dates: start: 20190207, end: 20190410
  12. COLCHICINE. [Concomitant]
     Active Substance: COLCHICINE
     Indication: ARTHRALGIA
     Dosage: 0.6 MG, QD
     Route: 048
     Dates: start: 20091116
  13. GABAPENTIN. [Concomitant]
     Active Substance: GABAPENTIN
     Indication: NEUROPATHY PERIPHERAL
     Dosage: 800 MG, TID
     Route: 048
     Dates: start: 20110426
  14. FOSFOMYCIN [Concomitant]
     Active Substance: FOSFOMYCIN
     Indication: URINARY TRACT INFECTION
     Dosage: UNK
     Route: 065
     Dates: start: 20180510, end: 20180523
  15. LIDOCAINE. [Concomitant]
     Active Substance: LIDOCAINE
     Indication: DYSAESTHESIA
     Dosage: 5%, 1 PATCH QD
     Route: 065
     Dates: start: 20130424
  16. JAKAFI [Suspect]
     Active Substance: RUXOLITINIB
     Indication: POLYCYTHAEMIA VERA
     Dosage: 10 MILLIGRAM, BID
     Route: 048
     Dates: start: 20180220, end: 20180418
  17. JAKAFI [Suspect]
     Active Substance: RUXOLITINIB
     Dosage: 5 MILLIGRAM, BID
     Route: 048
     Dates: start: 20180628, end: 20190206
  18. GABAPENTIN. [Concomitant]
     Active Substance: GABAPENTIN
     Dosage: 400 MILLIGRAM 4 TIMES IN A DAY
     Route: 065
     Dates: start: 20180326
  19. METOPROLOL SUCCINATE. [Concomitant]
     Active Substance: METOPROLOL SUCCINATE
     Indication: ANGINA PECTORIS
     Dosage: 50 MG, QD
     Route: 048
     Dates: start: 20160505, end: 20180502
  20. VITAMIN D3 [Concomitant]
     Active Substance: CHOLECALCIFEROL
     Indication: VITAMIN D DEFICIENCY
     Dosage: 4000 IU, QD
     Route: 048
     Dates: start: 20111220
  21. GABAPENTIN. [Concomitant]
     Active Substance: GABAPENTIN
     Dosage: 600 MILLIGRAM, QD
     Route: 065
     Dates: start: 20180326
  22. GUAIFENESIN AND DEXTROMETHORPHAN [Concomitant]
     Active Substance: DEXTROMETHORPHAN\GUAIFENESIN
     Indication: ANTITUSSIVE THERAPY
     Dosage: 10 ML, PRN
     Route: 048
     Dates: start: 20180503, end: 20180508
  23. FEXOFENADINE [Concomitant]
     Active Substance: FEXOFENADINE HYDROCHLORIDE
     Indication: HYPERSENSITIVITY
     Dosage: UNK, QD
     Route: 048
     Dates: start: 20180627
  24. NORTRIPTYLINE [Concomitant]
     Active Substance: NORTRIPTYLINE
     Dosage: 25 MG, PER NIGHT ALTERNATING
     Route: 048
     Dates: start: 20190327
  25. NYSTATIN. [Concomitant]
     Active Substance: NYSTATIN
     Indication: ORAL CANDIDIASIS
     Dosage: 5 MILLILITER, 4 TIMES A DAY
     Route: 065
     Dates: start: 20170124, end: 20170808
  26. JAKAFI [Suspect]
     Active Substance: RUXOLITINIB
     Dosage: 10 MILLIGRAM, BID
     Route: 048
     Dates: start: 20190411
  27. ASPIRIN                            /00002701/ [Concomitant]
     Active Substance: ASPIRIN
     Indication: POLYCYTHAEMIA VERA
     Dosage: 81 MG, QD
     Route: 048
     Dates: start: 2000
  28. METOPROLOL. [Concomitant]
     Active Substance: METOPROLOL
     Indication: POLYCYTHAEMIA VERA
     Dosage: 100 MILLIGRAM, QD
     Route: 065
     Dates: start: 20180503

REACTIONS (20)
  - Escherichia urinary tract infection [Recovered/Resolved]
  - Hypotension [Recovered/Resolved]
  - Anaemia [Recovered/Resolved]
  - Cough [Recovered/Resolved]
  - Fatigue [Recovered/Resolved]
  - Tachycardia [Recovered/Resolved]
  - Neoplasm malignant [Recovered/Resolved]
  - Herpes zoster [Unknown]
  - Dyspnoea [Recovered/Resolved]
  - Basal cell carcinoma [Recovered/Resolved]
  - Squamous cell carcinoma [Recovered/Resolved]
  - Anaemia [Recovered/Resolved]
  - Dysuria [Unknown]
  - Upper-airway cough syndrome [Recovered/Resolved]
  - Anaemia [Recovered/Resolved]
  - Dizziness [Recovered/Resolved]
  - Transaminases increased [Unknown]
  - Arthropod bite [Recovered/Resolved]
  - Presyncope [Recovered/Resolved]
  - Asthenia [Recovered/Resolved]

NARRATIVE: CASE EVENT DATE: 20180328
